FAERS Safety Report 4763228-7 (Version None)
Quarter: 2005Q3

REPORT INFORMATION
  Report Type: 
  Country: None (occurrence: None)
  Receive Date: 20050902
  Receipt Date: 20050820
  Transmission Date: 20060218
  Serious: Yes (Hospitalization)
  Sender: FDA-Public Use
  Company Number: 2005PL000063

PATIENT
  Age: 54 Year
  Sex: Female

DRUGS (3)
  1. IMURAN [Suspect]
     Indication: MYASTHENIA GRAVIS
     Dosage: 20 MG;QD;PO
     Route: 048
  2. PREDNISONE [Concomitant]
  3. MYCOPHENOLATE MOFETIL [Concomitant]

REACTIONS (4)
  - CENTRAL NERVOUS SYSTEM LYMPHOMA [None]
  - EPSTEIN-BARR VIRUS TEST POSITIVE [None]
  - GENERAL PHYSICAL HEALTH DETERIORATION [None]
  - TOOTH EXTRACTION [None]
